FAERS Safety Report 15709539 (Version 1)
Quarter: 2018Q4

REPORT INFORMATION
  Report Type: Spontaneous
  Country: US (occurrence: US)
  Receive Date: 20181211
  Receipt Date: 20181211
  Transmission Date: 20190205
  Serious: Yes (Other)
  Sender: FDA-Public Use
  Company Number: US-PFIZER INC-2018506116

PATIENT
  Age: 55 Year
  Sex: Male
  Weight: 83.91 kg

DRUGS (4)
  1. LYRICA [Suspect]
     Active Substance: PREGABALIN
     Indication: FIBROMYALGIA
     Dosage: 300 MG, 2X/DAY
     Route: 048
  2. OXYCONTIN [Concomitant]
     Active Substance: OXYCODONE HYDROCHLORIDE
     Indication: NEURALGIA
     Dosage: 720 MG, DAILY [9 TABLETS]
     Route: 048
     Dates: start: 2003
  3. FENTORA [Concomitant]
     Active Substance: FENTANYL CITRATE
     Indication: NEURALGIA
     Dosage: 800 UG, 6 TIMES DAILY
     Route: 048
     Dates: start: 2003
  4. LYRICA [Suspect]
     Active Substance: PREGABALIN
     Indication: DIABETIC NEUROPATHY

REACTIONS (1)
  - Meningitis [Unknown]
